FAERS Safety Report 15172920 (Version 3)
Quarter: 2020Q2

REPORT INFORMATION
  Report Type: Spontaneous
  Country: US (occurrence: US)
  Receive Date: 20180720
  Receipt Date: 20200624
  Transmission Date: 20200713
  Serious: No
  Sender: FDA-Public Use
  Company Number: US-VIFOR (INTERNATIONAL) INC.-VIT-2018-07233

PATIENT
  Age: 69 Year
  Sex: Male

DRUGS (13)
  1. ASPIRIN. [Concomitant]
     Active Substance: ASPIRIN
     Route: 048
     Dates: start: 20170113
  2. LANTUS [Concomitant]
     Active Substance: INSULIN GLARGINE
  3. VELTASSA [Suspect]
     Active Substance: PATIROMER
     Route: 048
     Dates: start: 20170117
  4. IRBESARTAN. [Concomitant]
     Active Substance: IRBESARTAN
  5. METFORMIN [Concomitant]
     Active Substance: METFORMIN HYDROCHLORIDE
  6. NIFEDICAL XL [Concomitant]
     Active Substance: NIFEDIPINE
  7. VITAMIN D3 [Concomitant]
     Active Substance: CHOLECALCIFEROL
  8. HUMALOG [Concomitant]
     Active Substance: INSULIN LISPRO
  9. ROSUVASTATIN. [Concomitant]
     Active Substance: ROSUVASTATIN
  10. FENOFIBRATE. [Concomitant]
     Active Substance: FENOFIBRATE
  11. SERTRALINE [Concomitant]
     Active Substance: SERTRALINE HYDROCHLORIDE
  12. VELTASSA [Suspect]
     Active Substance: PATIROMER
     Indication: HYPERKALAEMIA
     Route: 048
     Dates: start: 20170113
  13. FISH OIL [Concomitant]
     Active Substance: FISH OIL

REACTIONS (4)
  - Product colour issue [Unknown]
  - Product physical issue [Unknown]
  - Feeling abnormal [Not Recovered/Not Resolved]
  - Product dose omission [Not Recovered/Not Resolved]
